FAERS Safety Report 4594152-0 (Version None)
Quarter: 2005Q1

REPORT INFORMATION
  Report Type: 
  Country: None (occurrence: None)
  Receive Date: 20050222
  Receipt Date: 20050203
  Transmission Date: 20050727
  Serious: Yes (Hospitalization)
  Sender: FDA-Public Use
  Company Number: S05-FRA-00515-01

PATIENT
  Age: 81 Year
  Sex: Female

DRUGS (6)
  1. CITALOPRAM HYDROBROMIDE [Suspect]
     Dosage: 20 MG QD PO
     Route: 048
     Dates: end: 20040826
  2. RISPERDAL [Suspect]
     Dosage: 1 QD PO
     Route: 048
     Dates: end: 20040826
  3. EFFEXOR [Suspect]
     Dosage: 1 BID PO
     Route: 048
     Dates: end: 20040826
  4. BISOPROLOL FUMARATE [Suspect]
     Dosage: 1  QD PO
     Route: 048
     Dates: end: 20040826
  5. DEPAKOTE [Concomitant]
  6. GALANTAMINE [Concomitant]

REACTIONS (4)
  - DRUG INTERACTION [None]
  - FALL [None]
  - HYPOTENSION [None]
  - MALAISE [None]
